FAERS Safety Report 4469786-4 (Version None)
Quarter: 2004Q4

REPORT INFORMATION
  Report Type: 
  Country: None (occurrence: None)
  Receive Date: 20041008
  Receipt Date: 20041001
  Transmission Date: 20050328
  Serious: Yes (Other)
  Sender: FDA-Public Use
  Company Number: DZ-ROCHE-381851

PATIENT
  Age: 65 Year
  Sex: Male

DRUGS (8)
  1. NICARDIPINE HCL [Suspect]
     Indication: HYPERTENSION
     Route: 048
  2. LESCOL [Suspect]
     Route: 048
  3. APROVEL [Suspect]
     Indication: HYPERTENSION
     Route: 065
  4. AMLOR [Suspect]
     Indication: DRUG USE FOR UNKNOWN INDICATION
     Route: 065
  5. METFORMIN HCL [Concomitant]
  6. GLIBENCLAMIDE [Concomitant]
  7. NAFTIDROFURYL OXALATE [Concomitant]
  8. GLIMEPIRIDE [Concomitant]

REACTIONS (1)
  - RHABDOMYOLYSIS [None]
